FAERS Safety Report 4779859-4 (Version None)
Quarter: 2005Q3

REPORT INFORMATION
  Report Type: 
  Country: None (occurrence: None)
  Receive Date: 20050914
  Receipt Date: 20050706
  Transmission Date: 20060218
  Serious: Yes (Hospitalization, Other)
  Sender: FDA-Public Use
  Company Number: 163-20785-04060447

PATIENT
  Age: 49 Year
  Sex: Female
  Weight: 61.2 kg

DRUGS (2)
  1. THALOMID [Suspect]
     Indication: CHRONIC LYMPHOCYTIC LEUKAEMIA
     Dosage: 200 MG, QHS FOR 28 DAYS EVERY 28 DAYS, ORAL
     Route: 048
     Dates: start: 20030630
  2. FLUDARABINE PHOSPHATE [Suspect]
     Indication: CHRONIC LYMPHOCYTIC LEUKAEMIA
     Dosage: 25 MG/M2, OVER 30 MIN DAILY FOR 5 DAYS Q 28 DAYS, INTRAVENOUS
     Route: 042
     Dates: start: 20030630

REACTIONS (10)
  - ABDOMINAL INFECTION [None]
  - DYSPNOEA [None]
  - FATIGUE [None]
  - HAEMOGLOBIN DECREASED [None]
  - HERPES VIRUS INFECTION [None]
  - NEUROPATHY [None]
  - NEUTROPHIL COUNT DECREASED [None]
  - PLATELET COUNT DECREASED [None]
  - PYREXIA [None]
  - TONSILLITIS [None]
